FAERS Safety Report 8877599 (Version 1)
Quarter: 2012Q4

REPORT INFORMATION
  Report Type: Spontaneous
  Country: US (occurrence: None)
  Receive Date: 20121031
  Receipt Date: 20121031
  Transmission Date: 20130627
  Serious: Yes (Life-Threatening)
  Sender: FDA-Public Use
  Company Number: None

PATIENT
  Age: 64 Year
  Sex: Male
  Weight: 83.9 kg

DRUGS (25)
  1. THYMOGLOBULIN [Suspect]
     Indication: ACUTE GRAFT REJECTION
     Dosage: 125 mg-250 ml ns-
     Dates: start: 20121025
  2. PREDNISONE [Concomitant]
  3. EVEROLIMUS [Concomitant]
  4. AZATHIPRINE [Concomitant]
  5. TACROLIMUS [Concomitant]
  6. TYLENOL [Concomitant]
  7. COMBIVENT [Concomitant]
  8. ALENDRONATE [Concomitant]
  9. AZITHROMYCIN [Concomitant]
  10. NEXIUM [Concomitant]
  11. GABAPENTIN [Concomitant]
  12. MAGNESIUM OXIDE [Concomitant]
  13. PRAVASTATIN [Concomitant]
  14. FLONASE [Concomitant]
  15. MELATONIN [Concomitant]
  16. FISH OIL [Concomitant]
  17. COENZYME Q10 [Concomitant]
  18. VITAMIN D [Concomitant]
  19. AMBIEN [Concomitant]
  20. LOW-DOSE ASA [Concomitant]
  21. BACTRIM [Concomitant]
  22. CALCYTE [Concomitant]
  23. MV1 [Concomitant]
  24. CLARITIN [Concomitant]
  25. LISINOPRIL [Concomitant]

REACTIONS (4)
  - Anaphylactoid reaction [None]
  - Pulmonary oedema [None]
  - Respiratory failure [None]
  - Haemoptysis [None]
